FAERS Safety Report 7945527-0 (Version None)
Quarter: 2011Q4

REPORT INFORMATION
  Report Type: 
  Country: None (occurrence: None)
  Receive Date: 20111125
  Receipt Date: 20111108
  Transmission Date: 20120403
  Serious: Yes (Death)
  Sender: FDA-Public Use
  Company Number: FK201102671

PATIENT
  Age: 37 Year
  Sex: Female

DRUGS (8)
  1. TAMOXIFEN CITRATE [Suspect]
     Indication: BREAST CANCER
  2. GEMCITABINE [Suspect]
     Indication: BREAST CANCER
  3. DOXORUBICIN HCL [Suspect]
     Indication: BREAST CANCER
  4. VINORELBINE [Suspect]
     Indication: BREAST CANCER
  5. CYCLOPHOSPHAMIDE [Suspect]
     Indication: BREAST CANCER
  6. PACLITAXEL (MANUFACTURER UNKNOWN) (PACLITAXEL) (PACITAXEL) [Suspect]
     Indication: BREAST CANCER
  7. FULVESTRANT [Suspect]
     Indication: BREAST CANCER
  8. EXEMESTANE [Suspect]
     Indication: BREAST CANCER

REACTIONS (2)
  - CARDIAC CIRRHOSIS [None]
  - HEPATIC FAILURE [None]
